FAERS Safety Report 10089600 (Version 1)
Quarter: 2014Q2

REPORT INFORMATION
  Report Type: Spontaneous
  Country: FR (occurrence: FR)
  Receive Date: 20140421
  Receipt Date: 20140421
  Transmission Date: 20141212
  Serious: Yes (Death, Hospitalization)
  Sender: FDA-Public Use
  Company Number: FR-SA-2014SA044701

PATIENT
  Age: 81 Year
  Sex: Female

DRUGS (4)
  1. LOVENOX [Suspect]
     Indication: PRODUCT USED FOR UNKNOWN INDICATION
     Route: 058
     Dates: start: 20140218, end: 20140220
  2. PREVISCAN [Interacting]
     Indication: PRODUCT USED FOR UNKNOWN INDICATION
     Dosage: STRENGTH: 20 MG
     Route: 048
     Dates: end: 20140218
  3. LASILIX [Concomitant]
  4. AUGMENTIN [Concomitant]

REACTIONS (5)
  - Haematoma [Fatal]
  - Drug interaction [Fatal]
  - International normalised ratio increased [Fatal]
  - Condition aggravated [Fatal]
  - Cerebral haemorrhage [Fatal]
